FAERS Safety Report 16903199 (Version 2)
Quarter: 2021Q2

REPORT INFORMATION
  Report Type: Report from Study
  Country: FR (occurrence: FR)
  Receive Date: 20191010
  Receipt Date: 20210510
  Transmission Date: 20210716
  Serious: Yes (Other)
  Sender: FDA-Public Use
  Company Number: FR-KYOWAKIRIN-2019BKK015487

PATIENT

DRUGS (1)
  1. POTELIGEO [Suspect]
     Active Substance: MOGAMULIZUMAB-KPKC
     Indication: CUTANEOUS T-CELL LYMPHOMA STAGE IV
     Dosage: 1 MG/KG
     Route: 042
     Dates: start: 20190627, end: 20190726

REACTIONS (4)
  - Hepatic cytolysis [Recovered/Resolved]
  - Lymphopenia [Not Recovered/Not Resolved]
  - Product dose omission issue [Unknown]
  - Toxic skin eruption [Unknown]

NARRATIVE: CASE EVENT DATE: 2019
